FAERS Safety Report 20834288 (Version 1)
Quarter: 2022Q2

REPORT INFORMATION
  Report Type: Spontaneous
  Country: US (occurrence: US)
  Receive Date: 20220516
  Receipt Date: 20220516
  Transmission Date: 20220720
  Serious: Yes (Hospitalization)
  Sender: FDA-Public Use
  Company Number: US-RIGEL PHARMACEUTICALS, INC.-2022FOS000317

PATIENT
  Age: 67 Year
  Sex: Male
  Weight: 88.435 kg

DRUGS (7)
  1. TAVALISSE [Suspect]
     Active Substance: FOSTAMATINIB
     Indication: Immune thrombocytopenia
     Dosage: 100 MG, BID
     Route: 048
     Dates: start: 20220224
  2. CARBIDOPA AND LEVODOPA [Concomitant]
     Active Substance: CARBIDOPA\LEVODOPA
     Indication: Product used for unknown indication
     Dosage: 25-100 MG
  3. METOPROLOL [Concomitant]
     Active Substance: METOPROLOL
     Indication: Product used for unknown indication
     Dosage: 25 MG
  4. PRAMIPEXOLE [Concomitant]
     Active Substance: PRAMIPEXOLE
     Indication: Product used for unknown indication
     Dosage: 0.5 MG
  5. SEROQUEL [Concomitant]
     Active Substance: QUETIAPINE FUMARATE
     Indication: Product used for unknown indication
     Dosage: 25 MG
  6. PLATELETS [Concomitant]
     Active Substance: HUMAN PLATELET, ALLOGENIC
     Indication: Product used for unknown indication
     Dosage: UNK
     Route: 042
  7. WHOLE BLOOD [Concomitant]
     Active Substance: WHOLE BLOOD
     Indication: Product used for unknown indication
     Dosage: UNK
     Route: 042

REACTIONS (6)
  - Haemorrhage [Unknown]
  - Subdural haematoma [Unknown]
  - Platelet count [Unknown]
  - Haemoglobin decreased [Unknown]
  - Fall [Unknown]
  - Head injury [Unknown]

NARRATIVE: CASE EVENT DATE: 20220508
